FAERS Safety Report 9595961 (Version 2)
Quarter: 2013Q4

REPORT INFORMATION
  Report Type: Spontaneous
  Country: TW (occurrence: TW)
  Receive Date: 20131004
  Receipt Date: 20131227
  Transmission Date: 20140711
  Serious: Yes (Hospitalization)
  Sender: FDA-Public Use
  Company Number: TW-PFIZER INC-2013280159

PATIENT
  Age: 81 Year
  Sex: Male

DRUGS (2)
  1. SUTENT [Suspect]
     Indication: RENAL CELL CARCINOMA
     Dosage: 37.5 MG, ONCE DAILY, TWO WEEK ON AND ONE WEEK OFF
     Route: 048
     Dates: start: 20130123, end: 20130926
  2. SUTENT [Suspect]
     Dosage: 37.5 MG, ONCE DAILY, TWO WEEK ON AND ONE WEEK OFF
     Route: 048
     Dates: start: 201311

REACTIONS (7)
  - Diarrhoea [Not Recovered/Not Resolved]
  - Vomiting [Not Recovered/Not Resolved]
  - Abdominal distension [Not Recovered/Not Resolved]
  - Off label use [Recovered/Resolved]
  - Blood pressure increased [Recovered/Resolved]
  - Dry skin [Recovered/Resolved]
  - Decreased appetite [Not Recovered/Not Resolved]
